FAERS Safety Report 9342586 (Version 1)
Quarter: 2013Q2

REPORT INFORMATION
  Report Type: Spontaneous
  Country: DE (occurrence: DE)
  Receive Date: 20130611
  Receipt Date: 20130611
  Transmission Date: 20140414
  Serious: Yes (Congenital Anomaly, Other)
  Sender: FDA-Public Use
  Company Number: GXKR2013DE002074

PATIENT
  Sex: 0

DRUGS (4)
  1. FLUOXETINE [Suspect]
     Dosage: 40 MG, BID
     Route: 064
     Dates: start: 20071203, end: 20080122
  2. METHYLPHENIDATE [Suspect]
     Dosage: 20 MG, BID
     Route: 064
     Dates: start: 20071203, end: 20080122
  3. DIPIPERON [Suspect]
     Dosage: 40 MG, UNK
     Route: 064
     Dates: start: 20071203, end: 20080122
  4. FOLIO FORTE [Concomitant]
     Dosage: 8 MG, UNK (GW 8-12)
     Route: 064

REACTIONS (4)
  - Patent ductus arteriosus [Recovered/Resolved]
  - Atrial septal defect [Recovered/Resolved]
  - Neonatal respiratory distress syndrome [Recovered/Resolved]
  - Hypoglycaemia neonatal [Recovered/Resolved]
